FAERS Safety Report 13177515 (Version 1)
Quarter: 2017Q1

REPORT INFORMATION
  Report Type: Report from Study
  Country: US (occurrence: US)
  Receive Date: 20170201
  Receipt Date: 20170201
  Transmission Date: 20170428
  Serious: No
  Sender: FDA-Public Use
  Company Number: US-EXELIXIS-CABO-16006393

PATIENT
  Sex: Female

DRUGS (1)
  1. COMETRIQ [Suspect]
     Active Substance: CABOZANTINIB S-MALATE
     Indication: RENAL CANCER
     Dosage: 40 MG, QD
     Route: 048
     Dates: start: 20160317, end: 20160511

REACTIONS (11)
  - Fatigue [Unknown]
  - Hair colour changes [Unknown]
  - Asthenia [Unknown]
  - Dysgeusia [Unknown]
  - Tremor [Unknown]
  - Stomatitis [Unknown]
  - Headache [Unknown]
  - Dyspnoea [Unknown]
  - Mental impairment [Unknown]
  - Musculoskeletal chest pain [Unknown]
  - Off label use [Unknown]
